FAERS Safety Report 16194222 (Version 1)
Quarter: 2019Q2

REPORT INFORMATION
  Report Type: Spontaneous
  Country: GB (occurrence: US)
  Receive Date: 20190414
  Receipt Date: 20190414
  Transmission Date: 20190711
  Serious: Yes (Hospitalization)
  Sender: FDA-Public Use
  Company Number: GB-BIOGEN-2018BI00539075

PATIENT
  Sex: Female

DRUGS (2)
  1. AVONEX [Suspect]
     Active Substance: INTERFERON BETA-1A
     Route: 050
     Dates: start: 20080314
  2. AVONEX [Suspect]
     Active Substance: INTERFERON BETA-1A
     Indication: MULTIPLE SCLEROSIS
     Route: 050
     Dates: start: 20080314

REACTIONS (7)
  - Dysphagia [Unknown]
  - Nasopharyngitis [Unknown]
  - Eating disorder [Recovered/Resolved]
  - Dyspnoea [Unknown]
  - Fall [Unknown]
  - Stress [Unknown]
  - Weight decreased [Unknown]
